FAERS Safety Report 12707451 (Version 1)
Quarter: 2016Q3

REPORT INFORMATION
  Report Type: Report from Study
  Country: US (occurrence: US)
  Receive Date: 20160901
  Receipt Date: 20160901
  Transmission Date: 20161109
  Serious: Yes (Hospitalization, Other)
  Sender: FDA-Public Use
  Company Number: US-BIOGEN-2016BI00284196

PATIENT
  Sex: Male

DRUGS (1)
  1. TYSABRI [Suspect]
     Active Substance: NATALIZUMAB
     Indication: MULTIPLE SCLEROSIS
     Route: 065
     Dates: start: 20150223

REACTIONS (5)
  - Urinary tract infection [Unknown]
  - Bladder catheterisation [Unknown]
  - Catheter removal [Unknown]
  - Psychotic disorder [Unknown]
  - Insomnia [Unknown]
